FAERS Safety Report 19777958 (Version 1)
Quarter: 2021Q3

REPORT INFORMATION
  Report Type: Spontaneous
  Country: US (occurrence: US)
  Receive Date: 20210901
  Receipt Date: 20210901
  Transmission Date: 20211014
  Serious: No
  Sender: FDA-Public Use
  Company Number: None

PATIENT
  Age: 84 Year
  Sex: Female
  Weight: 56.25 kg

DRUGS (20)
  1. AMLODIPINE [Concomitant]
     Active Substance: AMLODIPINE BESYLATE
  2. ALIGN [Concomitant]
     Active Substance: BIFIDOBACTERIUM LONGUM SUBSP. INFANTIS
  3. FISH OIL BURP?LESS 1000MG [Concomitant]
  4. FLUZONE HIGH?DOSE QUADRIVALENT [Concomitant]
     Active Substance: INFLUENZA A VIRUS A/MICHIGAN/45/2015 X-275 (H1N1) ANTIGEN (FORMALDEHYDE INACTIVATED)\INFLUENZA A VIRUS A/SINGAPORE/INFIMH-16-0019/2016 IVR-186 (H3N2) ANTIGEN (FORMALDEHYDE INACTIVATED)\INFLUENZA B VIRUS B/MARYLAND/15/2016 BX-69A ANTIGEN (FORMALDEHYDE INACTIVATED)\INFLUENZA B VIRUS B/PHUKET/3073/2013
  5. SHINGRIX 50MCG/0.5ML [Concomitant]
  6. EZETIMIBE 10MG [Concomitant]
     Active Substance: EZETIMIBE
  7. LOSARTAN 50MG [Concomitant]
     Active Substance: LOSARTAN
  8. MIRALAX 17GM [Concomitant]
  9. MULTIVITAMIN [Concomitant]
     Active Substance: VITAMINS
  10. CARVEDILOL 25MG [Concomitant]
     Active Substance: CARVEDILOL
  11. MAG64 64MG [Concomitant]
  12. ROSUVASTATIN 10MG [Concomitant]
     Active Substance: ROSUVASTATIN
  13. VITAMIN D3 2000IU [Concomitant]
  14. KLOR?CON M20 20MEQ [Concomitant]
  15. VITAMIN B12 500MCG [Concomitant]
  16. CYCLOPHOSPHAMIDE. [Suspect]
     Active Substance: CYCLOPHOSPHAMIDE
     Indication: OVARIAN CANCER
     Route: 048
     Dates: start: 20210303, end: 20210901
  17. REFRESH TEARS 0.5% [Concomitant]
  18. CBD OIL [Concomitant]
     Active Substance: CANNABIDIOL\HERBALS
  19. LEVOFLOXACIN 500MG [Concomitant]
     Active Substance: LEVOFLOXACIN
  20. ONDANSETRON [Concomitant]
     Active Substance: ONDANSETRON

REACTIONS (2)
  - Disease progression [None]
  - Blood calcium increased [None]

NARRATIVE: CASE EVENT DATE: 20210901
